FAERS Safety Report 7146117-2 (Version None)
Quarter: 2010Q4

REPORT INFORMATION
  Report Type: 
  Country: None (occurrence: None)
  Receive Date: 20101208
  Receipt Date: 20101201
  Transmission Date: 20110411
  Serious: Yes (Hospitalization, Disabling)
  Sender: FDA-Public Use
  Company Number: US-MERCK-1010USA00021

PATIENT
  Age: 56 Year
  Sex: Female

DRUGS (6)
  1. ISENTRESS [Suspect]
     Indication: HIV INFECTION
     Route: 048
     Dates: start: 20100401, end: 20100401
  2. ISENTRESS [Suspect]
     Route: 048
     Dates: start: 20100501, end: 20100617
  3. ISENTRESS [Suspect]
     Route: 048
     Dates: start: 20100624, end: 20100701
  4. TRUVADA [Concomitant]
     Route: 065
  5. WELLBUTRIN [Concomitant]
     Route: 065
     Dates: end: 20100601
  6. ETRAVIRINE [Concomitant]
     Route: 065

REACTIONS (1)
  - CEREBELLAR ATAXIA [None]
